FAERS Safety Report 8376421-1 (Version None)
Quarter: 2012Q2

REPORT INFORMATION
  Report Type: 
  Country: None (occurrence: None)
  Receive Date: 20120522
  Receipt Date: 20120518
  Transmission Date: 20120825
  Serious: Yes (Other)
  Sender: FDA-Public Use
  Company Number: PHHY2010BR72529

PATIENT
  Sex: Male

DRUGS (1)
  1. DESERILA [Suspect]
     Indication: MIGRAINE
     Dosage: 1 MG, UNK

REACTIONS (3)
  - DRUG DEPENDENCE [None]
  - PAIN [None]
  - ANXIETY [None]
